FAERS Safety Report 6647729-2 (Version None)
Quarter: 2010Q1

REPORT INFORMATION
  Report Type: 
  Country: None (occurrence: None)
  Receive Date: 20100323
  Receipt Date: 20100323
  Transmission Date: 20100710
  Serious: No
  Sender: FDA-Public Use
  Company Number: None

PATIENT
  Sex: Female
  Weight: 95.2554 kg

DRUGS (2)
  1. COREG CR [Suspect]
     Indication: HYPERTENSION
     Dosage: 10MG. - (1 TAB). 1X PER DAY MOUTH
     Dates: start: 20100213, end: 20100223
  2. ATENOLOL [Suspect]
     Indication: CARDIOMEGALY
     Dosage: 25MG. (1/2 TAB) 1X PER DAY MOUTH
     Dates: start: 20100303, end: 20100305

REACTIONS (7)
  - CONDITION AGGRAVATED [None]
  - GLOSSODYNIA [None]
  - HYPOAESTHESIA ORAL [None]
  - MYALGIA [None]
  - NEURALGIA [None]
  - RESTLESS LEGS SYNDROME [None]
  - SWOLLEN TONGUE [None]
